FAERS Safety Report 14755717 (Version 3)
Quarter: 2018Q2

REPORT INFORMATION
  Report Type: Report from Study
  Country: US (occurrence: US)
  Receive Date: 20180413
  Receipt Date: 20180516
  Transmission Date: 20180711
  Serious: Yes (Death, Hospitalization, Other)
  Sender: FDA-Public Use
  Company Number: US-GILEAD-2018-0332124

PATIENT
  Age: 66 Year
  Sex: Female

DRUGS (1)
  1. AMBRISENTAN [Suspect]
     Active Substance: AMBRISENTAN
     Indication: PORTOPULMONARY HYPERTENSION
     Dosage: 10 MG, QD
     Route: 065
     Dates: start: 20170211, end: 20180409

REACTIONS (5)
  - Aphasia [Unknown]
  - Dysphagia [Unknown]
  - Cerebrovascular accident [Fatal]
  - Dialysis [Recovered/Resolved]
  - Hemiplegia [Unknown]

NARRATIVE: CASE EVENT DATE: 20180406
